FAERS Safety Report 6138316-3 (Version None)
Quarter: 2009Q1

REPORT INFORMATION
  Report Type: 
  Country: None (occurrence: None)
  Receive Date: 20090327
  Receipt Date: 20090327
  Transmission Date: 20090719
  Serious: Yes (Hospitalization)
  Sender: FDA-Public Use
  Company Number: None

PATIENT
  Age: 44 Year
  Sex: Female
  Weight: 61.2356 kg

DRUGS (1)
  1. MUCINEX DM [Suspect]
     Indication: SINUS CONGESTION
     Dosage: 1-2 TABLETS 12 HRS, I TOOK ONLY 6 PILLS
     Dates: start: 20090309, end: 20090326

REACTIONS (4)
  - BLOOD POTASSIUM DECREASED [None]
  - CHILLS [None]
  - HYPOAESTHESIA [None]
  - NAUSEA [None]
